FAERS Safety Report 25402474 (Version 1)
Quarter: 2025Q2

REPORT INFORMATION
  Report Type: Spontaneous
  Country: CA (occurrence: CA)
  Receive Date: 20250605
  Receipt Date: 20250605
  Transmission Date: 20250716
  Serious: Yes (Hospitalization, Other)
  Sender: PFIZER
  Company Number: CA-PFIZER INC-202500094075

PATIENT
  Age: 50 Year
  Sex: Male

DRUGS (13)
  1. RUXIENCE [Suspect]
     Active Substance: RITUXIMAB-PVVR
     Indication: Dermatomyositis
     Route: 042
     Dates: start: 20231024, end: 20231109
  2. RUXIENCE [Suspect]
     Active Substance: RITUXIMAB-PVVR
     Route: 042
     Dates: start: 20240425, end: 20240509
  3. RUXIENCE [Suspect]
     Active Substance: RITUXIMAB-PVVR
     Route: 042
     Dates: start: 20241031
  4. RUXIENCE [Suspect]
     Active Substance: RITUXIMAB-PVVR
     Dates: start: 20241114
  5. RUXIENCE [Suspect]
     Active Substance: RITUXIMAB-PVVR
     Route: 042
     Dates: start: 20250501
  6. RUXIENCE [Suspect]
     Active Substance: RITUXIMAB-PVVR
     Route: 042
     Dates: start: 20250515
  7. AZATHIOPRINE [Concomitant]
     Active Substance: AZATHIOPRINE
  8. ASPIRIN [Concomitant]
     Active Substance: ASPIRIN
  9. DOMPERIDONE [Concomitant]
     Active Substance: DOMPERIDONE
  10. GABAPENTIN [Concomitant]
     Active Substance: GABAPENTIN
  11. PREDNISONE [Concomitant]
     Active Substance: PREDNISONE
  12. SULFATRIM [Concomitant]
     Active Substance: SULFAMETHOXAZOLE\TRIMETHOPRIM
  13. TAMSULOSIN [Concomitant]
     Active Substance: TAMSULOSIN

REACTIONS (3)
  - Superior mesenteric artery syndrome [Unknown]
  - Weight decreased [Unknown]
  - Balance disorder [Unknown]
